FAERS Safety Report 24844857 (Version 1)
Quarter: 2025Q1

REPORT INFORMATION
  Report Type: Report from Study
  Country: US (occurrence: US)
  Receive Date: 20250115
  Receipt Date: 20250115
  Transmission Date: 20250409
  Serious: Yes (Hospitalization)
  Sender: ABBVIE
  Company Number: US-ABBVIE-6079825

PATIENT
  Sex: Female

DRUGS (1)
  1. RINVOQ [Suspect]
     Active Substance: UPADACITINIB
     Indication: Crohn^s disease
     Route: 048
     Dates: start: 20240629

REACTIONS (8)
  - Bone pain [Recovering/Resolving]
  - Abdominal pain [Recovering/Resolving]
  - Blood sodium decreased [Recovering/Resolving]
  - Decreased appetite [Recovering/Resolving]
  - Discomfort [Recovering/Resolving]
  - Blood urine present [Recovering/Resolving]
  - Pneumonia [Recovering/Resolving]
  - Platelet count increased [Recovering/Resolving]
